FAERS Safety Report 24311541 (Version 2)
Quarter: 2024Q3

REPORT INFORMATION
  Report Type: Spontaneous
  Country: US (occurrence: US)
  Receive Date: 20240912
  Receipt Date: 20240926
  Transmission Date: 20241017
  Serious: Yes (Other)
  Sender: NOVARTIS
  Company Number: US-002147023-NVSC2024US180590

PATIENT

DRUGS (1)
  1. COSENTYX [Suspect]
     Active Substance: SECUKINUMAB
     Indication: Psoriatic arthropathy
     Dosage: UNK
     Route: 065

REACTIONS (12)
  - Psoriatic arthropathy [Unknown]
  - Condition aggravated [Unknown]
  - Pain [Unknown]
  - Musculoskeletal stiffness [Unknown]
  - Oropharyngeal pain [Unknown]
  - Nasal congestion [Unknown]
  - Diarrhoea [Unknown]
  - Gastrointestinal infection [Unknown]
  - Feeling abnormal [Unknown]
  - Pain [Unknown]
  - Mobility decreased [Unknown]
  - Fall [Unknown]
